FAERS Safety Report 21371491 (Version 1)
Quarter: 2022Q3

REPORT INFORMATION
  Report Type: Spontaneous
  Country: US (occurrence: US)
  Receive Date: 20220923
  Receipt Date: 20220923
  Transmission Date: 20221026
  Serious: No
  Sender: FDA-Public Use
  Company Number: US-MYLANLABS-2022M1093826

PATIENT
  Sex: Male
  Weight: 111.13 kg

DRUGS (3)
  1. SEMGLEE (INSULIN GLARGINE-YFGN) [Suspect]
     Active Substance: INSULIN GLARGINE-YFGN
     Indication: Type 1 diabetes mellitus
     Dosage: 50 INTERNATIONAL UNIT, QD
     Route: 058
     Dates: start: 20220905
  2. Magnilife pain relieving foot cream [Concomitant]
     Dosage: APPLY CREAM FROM KNEE TO FEET
     Route: 065
  3. ALEVE [Concomitant]
     Active Substance: NAPROXEN SODIUM
     Dosage: AS NEEDED
     Route: 065

REACTIONS (4)
  - Injection site reaction [Unknown]
  - Nausea [Unknown]
  - Injection site mass [Unknown]
  - Needle issue [Unknown]
